FAERS Safety Report 9457501 (Version 1)
Quarter: 2013Q3

REPORT INFORMATION
  Report Type: Spontaneous
  Country: None (occurrence: None)
  Receive Date: 20130812
  Receipt Date: 20130812
  Transmission Date: 20140515
  Serious: Yes (Hospitalization)
  Sender: FDA-Public Use
  Company Number: AG-2012-1544

PATIENT
  Age: 85 Year
  Sex: Male
  Weight: 84 kg

DRUGS (7)
  1. CHLORAMBUCIL [Suspect]
     Indication: CHRONIC LYMPHOCYTIC LEUKAEMIA
     Dosage: (44 MILLIGRAM, DAY 1 + 15 OF EACH CYCLE), ORAL
     Route: 048
     Dates: start: 20110224
  2. RITUXIMAB [Suspect]
     Indication: CHRONIC LYMPHOCYTIC LEUKAEMIA
     Dosage: 1 IN 1 MONTH
     Route: 042
     Dates: start: 20110224
  3. TAMULOSIN (TAMULOSIN) (UNKNOWN) [Concomitant]
  4. TEBOFORTAN (GINKOBILOBA) (UNKNOWN) [Concomitant]
  5. TRITTICO (TRAZADONE) (UNKNOWN) [Concomitant]
  6. RAMIPRIL (RAMIPRIL) (UNKNOWN) [Concomitant]
  7. SELOKEN (METOPROLOL) (UNKNOWN) [Concomitant]

REACTIONS (3)
  - Hypertension [None]
  - Upper respiratory tract infection [None]
  - Pleural effusion [None]
